FAERS Safety Report 15093192 (Version 1)
Quarter: 2018Q2

REPORT INFORMATION
  Report Type: Spontaneous
  Country: US (occurrence: US)
  Receive Date: 20180608
  Receipt Date: 20180608
  Transmission Date: 20180711
  Serious: No
  Sender: FDA-Public Use
  Company Number: None

PATIENT
  Age: 65 Year
  Sex: Female
  Weight: 81.19 kg

DRUGS (1)
  1. PANTOPRAZOLE [Suspect]
     Active Substance: PANTOPRAZOLE
     Indication: GASTROOESOPHAGEAL REFLUX DISEASE
     Dosage: 1 TAB AM PO?
     Route: 048
     Dates: start: 20180312, end: 20180319

REACTIONS (4)
  - Urticaria [None]
  - Feeling abnormal [None]
  - Tremor [None]
  - Pruritus [None]

NARRATIVE: CASE EVENT DATE: 20180318
